FAERS Safety Report 6874324-2 (Version None)
Quarter: 2010Q3

REPORT INFORMATION
  Report Type: 
  Country: None (occurrence: None)
  Receive Date: 20100723
  Receipt Date: 20090603
  Transmission Date: 20110219
  Serious: No
  Sender: FDA-Public Use
  Company Number: US-PFIZER INC-2009196899

PATIENT
  Sex: Female
  Weight: 72.574 kg

DRUGS (2)
  1. CHANTIX [Suspect]
     Indication: SMOKING CESSATION THERAPY
     Dosage: 0.5 MG, 2X/DAY
     Route: 048
     Dates: start: 20090326
  2. DESMOPRESSIN [Concomitant]
     Indication: RENAL DISORDER
     Dosage: UNK

REACTIONS (6)
  - EATING DISORDER [None]
  - GLOSSODYNIA [None]
  - INCORRECT DOSE ADMINISTERED [None]
  - SPEECH DISORDER [None]
  - TONGUE BLISTERING [None]
  - TONGUE DISORDER [None]
